FAERS Safety Report 5580487-1 (Version None)
Quarter: 2007Q4

REPORT INFORMATION
  Report Type: 
  Country: None (occurrence: None)
  Receive Date: 20071130
  Receipt Date: 20070717
  Transmission Date: 20080405
  Serious: No
  Sender: FDA-Public Use
  Company Number: US200707004359

PATIENT
  Age: 44 Year
  Sex: Female
  Weight: 63 kg

DRUGS (4)
  1. BYETTA [Suspect]
     Indication: INSULIN RESISTANCE
     Dosage: 5 UG, 2/D SUBCUTANEOUS
     Route: 058
     Dates: start: 20070620
  2. GLUCOPHAGE [Concomitant]
  3. . [Concomitant]
  4. . [Concomitant]

REACTIONS (10)
  - ABDOMINAL PAIN [None]
  - BACK PAIN [None]
  - CONFUSIONAL STATE [None]
  - DECREASED APPETITE [None]
  - HYPOGLYCAEMIA [None]
  - INJECTION SITE BRUISING [None]
  - INJECTION SITE PAIN [None]
  - NAUSEA [None]
  - PAIN [None]
  - TREMOR [None]
